FAERS Safety Report 5159456-1 (Version None)
Quarter: 2006Q4

REPORT INFORMATION
  Report Type: 
  Country: None (occurrence: None)
  Receive Date: 20061122
  Receipt Date: 20061122
  Transmission Date: 20070319
  Serious: Yes (Disabling, Other)
  Sender: FDA-Public Use
  Company Number: None

PATIENT
  Age: 66 Year
  Sex: Female
  Weight: 49.8957 kg

DRUGS (1)
  1. DEXTROAMPHETAMINE (BARR) [Suspect]
     Indication: CHRONIC FATIGUE SYNDROME
     Dosage: 5 MG - 3X DAY
     Dates: start: 20060616, end: 20061007

REACTIONS (4)
  - FATIGUE [None]
  - HEART RATE IRREGULAR [None]
  - PHARMACEUTICAL PRODUCT COMPLAINT [None]
  - SOMNOLENCE [None]
